FAERS Safety Report 11325104 (Version 1)
Quarter: 2015Q3

REPORT INFORMATION
  Report Type: Spontaneous
  Country: US (occurrence: US)
  Receive Date: 20150730
  Receipt Date: 20150730
  Transmission Date: 20151125
  Serious: Yes (Other)
  Sender: FDA-Public Use
  Company Number: US-BAYER-2015-389963

PATIENT
  Age: 81 Year
  Sex: Male
  Weight: 89 kg

DRUGS (4)
  1. FEBUXOSTAT. [Concomitant]
     Active Substance: FEBUXOSTAT
     Dosage: UNK UNK, UNK
  2. BAYER ASPIRIN REGIMEN REGULAR 325 MG STRENGTH [Suspect]
     Active Substance: ASPIRIN
     Indication: CAROTID ARTERY OCCLUSION
     Dosage: UNK
     Route: 048
     Dates: start: 1998, end: 2015
  3. MULTIVIT [Concomitant]
     Active Substance: VITAMINS
     Dosage: UNK UNK, UNK
  4. LYRICA [Concomitant]
     Active Substance: PREGABALIN
     Dosage: UNK UNK, UNK

REACTIONS (4)
  - Intentional product misuse [Unknown]
  - Gastric haemorrhage [Recovered/Resolved]
  - Gastrointestinal erosion [Unknown]
  - Haemoglobin decreased [Recovered/Resolved]

NARRATIVE: CASE EVENT DATE: 1998
